FAERS Safety Report 24140060 (Version 1)
Quarter: 2024Q3

REPORT INFORMATION
  Report Type: Spontaneous
  Country: IE (occurrence: IE)
  Receive Date: 20240726
  Receipt Date: 20240726
  Transmission Date: 20241017
  Serious: Yes (Other)
  Sender: Haleon PLC
  Company Number: None

PATIENT
  Age: 77 Year
  Sex: Male

DRUGS (4)
  1. IBUPROFEN [Suspect]
     Active Substance: IBUPROFEN
     Indication: Muscle injury
  2. IBUPROFEN [Suspect]
     Active Substance: IBUPROFEN
     Indication: Osteoarthritis
  3. SOTOGER [Concomitant]
     Indication: Atrial fibrillation
     Route: 048
     Dates: start: 20221013
  4. ZOVIRAX [Suspect]
     Active Substance: ACYCLOVIR
     Indication: Herpes zoster reactivation
     Route: 048
     Dates: start: 20201104

REACTIONS (3)
  - Atrial fibrillation [Unknown]
  - Disease recurrence [Unknown]
  - Drug ineffective [Unknown]
